FAERS Safety Report 8587460 (Version 4)
Quarter: 2013Q3

REPORT INFORMATION
  Report Type: Spontaneous
  Country: JP (occurrence: JP)
  Receive Date: 20120531
  Receipt Date: 20130725
  Transmission Date: 20140515
  Serious: Yes (Hospitalization)
  Sender: FDA-Public Use
  Company Number: JP-JNJFOC-20120519992

PATIENT
  Age: 68 Year
  Sex: Female
  Weight: 53 kg

DRUGS (7)
  1. GOLIMUMAB [Suspect]
     Indication: RHEUMATOID ARTHRITIS
     Route: 058
  2. GOLIMUMAB [Suspect]
     Indication: RHEUMATOID ARTHRITIS
     Dosage: 4TH DOSE
     Route: 058
     Dates: start: 20120406, end: 20120406
  3. GOLIMUMAB [Suspect]
     Indication: RHEUMATOID ARTHRITIS
     Route: 058
     Dates: start: 20111216, end: 20111216
  4. EVISTA [Concomitant]
     Route: 048
  5. AMLODIN [Concomitant]
     Route: 048
  6. MUCOSTA [Concomitant]
     Route: 048
  7. URSO [Concomitant]
     Route: 048

REACTIONS (1)
  - Erythema multiforme [Recovering/Resolving]
